FAERS Safety Report 26110391 (Version 1)
Quarter: 2025Q4

REPORT INFORMATION
  Report Type: Spontaneous
  Country: JP (occurrence: JP)
  Receive Date: 20251202
  Receipt Date: 20251202
  Transmission Date: 20260118
  Serious: Yes (Hospitalization, Other)
  Sender: STRIDES
  Company Number: JP-STRIDES ARCOLAB LIMITED-2025SP014886

PATIENT
  Sex: Female

DRUGS (2)
  1. METHOTREXATE [Suspect]
     Active Substance: METHOTREXATE
     Indication: Rheumatoid arthritis
     Dosage: UNK
     Route: 048
  2. URSODIOL [Suspect]
     Active Substance: URSODIOL
     Indication: Hepatic enzyme increased
     Route: 065

REACTIONS (4)
  - Hepatic cancer metastatic [Recovered/Resolved]
  - B-cell lymphoma [Recovered/Resolved]
  - Lymphoproliferative disorder [Recovered/Resolved]
  - Off label use [Unknown]
